FAERS Safety Report 24585513 (Version 1)
Quarter: 2024Q4

REPORT INFORMATION
  Report Type: Report from Study
  Country: US (occurrence: US)
  Receive Date: 20241106
  Receipt Date: 20241106
  Transmission Date: 20250114
  Serious: Yes (Other)
  Sender: UCB
  Company Number: US-UCBSA-2024034135

PATIENT
  Sex: Male
  Weight: 75 kg

DRUGS (2)
  1. FINTEPLA [Suspect]
     Active Substance: FENFLURAMINE
     Indication: Lennox-Gastaut syndrome
     Dosage: 6 MILLILITER, 2X/DAY (BID)
     Dates: start: 20240416
  2. FINTEPLA [Suspect]
     Active Substance: FENFLURAMINE
     Dosage: 26 MG/DAY
     Dates: start: 2024

REACTIONS (7)
  - Mitral valve thickening [Unknown]
  - Mood swings [Not Recovered/Not Resolved]
  - Emotional disorder [Not Recovered/Not Resolved]
  - Crying [Not Recovered/Not Resolved]
  - Soft tissue swelling [Unknown]
  - Fall [Unknown]
  - Left atrial dilatation [Unknown]

NARRATIVE: CASE EVENT DATE: 20240101
